FAERS Safety Report 5528575-X (Version None)
Quarter: 2007Q4

REPORT INFORMATION
  Report Type: 
  Country: None (occurrence: None)
  Receive Date: 20071123
  Receipt Date: 20071112
  Transmission Date: 20080405
  Serious: Yes (Life-Threatening)
  Sender: FDA-Public Use
  Company Number: 2007EU002488

PATIENT
  Age: 72 Year
  Sex: Male

DRUGS (1)
  1. VESICARE [Suspect]
     Indication: URINARY INCONTINENCE
     Dosage: 5 MG, UNKNOWN/D, ORAL
     Route: 048
     Dates: start: 20070101, end: 20070101

REACTIONS (6)
  - ALTERED STATE OF CONSCIOUSNESS [None]
  - BALANCE DISORDER [None]
  - DYSSTASIA [None]
  - LOSS OF CONSCIOUSNESS [None]
  - SYNCOPE [None]
  - VERTIGO [None]
